FAERS Safety Report 5065458-6 (Version None)
Quarter: 2006Q3

REPORT INFORMATION
  Report Type: 
  Country: None (occurrence: None)
  Receive Date: 20060731
  Receipt Date: 20051215
  Transmission Date: 20061208
  Serious: Yes (Hospitalization, Other)
  Sender: FDA-Public Use
  Company Number: PHBS2005BR18661

PATIENT
  Age: 56 Year
  Sex: Male
  Weight: 103 kg

DRUGS (4)
  1. ROCEPHIN [Suspect]
  2. DIOVAN [Suspect]
     Indication: HYPERTENSION
     Dosage: 80 MG, QD
     Route: 048
     Dates: start: 20060701
  3. DIOVAN [Suspect]
     Dosage: 40 MG, BID
     Route: 048
  4. DIOVAN [Suspect]
     Dosage: 80 MG/DAY
     Route: 048
     Dates: start: 20050101, end: 20050101

REACTIONS (7)
  - AGITATION [None]
  - ANAPHYLACTIC SHOCK [None]
  - NIGHTMARE [None]
  - PULMONARY CONGESTION [None]
  - SLEEP DISORDER [None]
  - TREMOR [None]
  - URTICARIA [None]
